FAERS Safety Report 18779941 (Version 1)
Quarter: 2021Q1

REPORT INFORMATION
  Report Type: Spontaneous
  Country: US (occurrence: US)
  Receive Date: 20210125
  Receipt Date: 20210125
  Transmission Date: 20210419
  Serious: Yes (Other)
  Sender: FDA-Public Use
  Company Number: US-IGSA-BIG0012622

PATIENT
  Age: 30 Year
  Sex: Female
  Weight: 72.56 kg

DRUGS (2)
  1. XEMBIFY [Suspect]
     Active Substance: HUMAN IMMUNOGLOBULIN G
     Dosage: 10 GRAM, Q.WK.
     Route: 058
     Dates: start: 20201220
  2. XEMBIFY [Suspect]
     Active Substance: HUMAN IMMUNOGLOBULIN G
     Indication: IMMUNODEFICIENCY
     Dosage: 10 GRAM, Q.WK.
     Route: 058
     Dates: start: 20201213

REACTIONS (2)
  - Hypoaesthesia [Unknown]
  - Chest pain [Unknown]

NARRATIVE: CASE EVENT DATE: 20201213
